FAERS Safety Report 4710513-0 (Version None)
Quarter: 2005Q3

REPORT INFORMATION
  Report Type: 
  Country: None (occurrence: None)
  Receive Date: 20050711
  Receipt Date: 20050608
  Transmission Date: 20060218
  Serious: Yes (Life-Threatening, Hospitalization)
  Sender: FDA-Public Use
  Company Number: US-ROCHE-407062

PATIENT
  Age: 66 Year
  Sex: Male
  Weight: 89 kg

DRUGS (16)
  1. CAPECITABINE [Suspect]
     Indication: OESOPHAGEAL CARCINOMA
     Dosage: DOSE EQUATES TO 1300MG.  GIVEN ON MONDAY TO FRIDAY OF EACH WEEK (28 DAY CYCLE).
     Route: 048
     Dates: start: 20050427, end: 20050606
  2. OXALIPLATIN [Suspect]
     Indication: OESOPHAGEAL CARCINOMA
     Dosage: GIVEN ON DAYS 1, 15 AND 29.
     Route: 042
     Dates: start: 20050425, end: 20050523
  3. COMPAZINE [Concomitant]
     Indication: NAUSEA
     Dosage: P.R.N.
     Route: 048
  4. ZOFRAN [Concomitant]
     Indication: NAUSEA
     Dosage: P.R.N.
     Route: 048
  5. PAXIL [Concomitant]
     Indication: ANXIETY
     Route: 048
  6. IBUPROFEN [Concomitant]
     Indication: HEADACHE
  7. ECOTRIN [Concomitant]
     Route: 048
  8. LIPITOR [Concomitant]
     Route: 048
  9. CLOTRIMAZOLE [Concomitant]
     Dosage: ^1 DAILY FOR FIVE DAYS^.
     Dates: start: 20050331
  10. CLOPIDOGREL BISULFATE [Concomitant]
  11. NASONEX [Concomitant]
     Dosage: 1 SPRAY DAILY, EACH NOSTRIL.
     Route: 045
  12. CHLORAL HYDRATE [Concomitant]
     Dosage: H.S. P.R.N.
  13. OXYCONTIN [Concomitant]
     Route: 048
  14. COGENTIN [Concomitant]
     Route: 048
  15. PROTONIX [Concomitant]
     Route: 048
  16. RESTORIL [Concomitant]
     Dosage: QHS.  PRN.
     Route: 048

REACTIONS (17)
  - AGGRESSION [None]
  - ANAEMIA [None]
  - BACTERIAL INFECTION [None]
  - CHILLS [None]
  - CULTURE URINE POSITIVE [None]
  - DEPRESSION [None]
  - DUODENAL ULCER HAEMORRHAGE [None]
  - FAECES DISCOLOURED [None]
  - GASTROINTESTINAL HAEMORRHAGE [None]
  - HEADACHE [None]
  - MOOD ALTERED [None]
  - NEUTROPENIA [None]
  - OROPHARYNGITIS FUNGAL [None]
  - PRODUCTIVE COUGH [None]
  - PYREXIA [None]
  - SUICIDAL IDEATION [None]
  - THROMBOCYTOPENIA [None]
